FAERS Safety Report 11434580 (Version 1)
Quarter: 2015Q3

REPORT INFORMATION
  Report Type: Report from Study
  Country: US (occurrence: US)
  Receive Date: 20150831
  Receipt Date: 20150831
  Transmission Date: 20151125
  Serious: Yes (Hospitalization, Other)
  Sender: FDA-Public Use
  Company Number: US-ASTELLAS-2015US024912

PATIENT
  Sex: Male

DRUGS (1)
  1. ERLOTINIB [Suspect]
     Active Substance: ERLOTINIB
     Indication: PANCREATIC CARCINOMA
     Route: 048
     Dates: end: 20050704

REACTIONS (5)
  - Off label use [Unknown]
  - Brain neoplasm malignant [Unknown]
  - Gastric disorder [Unknown]
  - Feeding disorder [Unknown]
  - Malaise [Unknown]
